FAERS Safety Report 19974907 (Version 1)
Quarter: 2021Q4

REPORT INFORMATION
  Report Type: Spontaneous
  Country: US (occurrence: US)
  Receive Date: 20211020
  Receipt Date: 20211020
  Transmission Date: 20220304
  Serious: No
  Sender: FDA-Public Use
  Company Number: US-ALLERGAN-2045410US

PATIENT
  Sex: Female

DRUGS (4)
  1. LINZESS [Suspect]
     Active Substance: LINACLOTIDE
     Indication: Impaired gastric emptying
     Dosage: 290 ?G, QD
     Route: 048
     Dates: start: 202003, end: 202011
  2. LINZESS [Suspect]
     Active Substance: LINACLOTIDE
     Indication: Dumping syndrome
  3. ATENOLOL [Concomitant]
     Active Substance: ATENOLOL
     Indication: Hypertension
     Dosage: UNK
  4. CHLORTHALIDONE [Concomitant]
     Active Substance: CHLORTHALIDONE
     Indication: Hypertension

REACTIONS (17)
  - Back disorder [Not Recovered/Not Resolved]
  - Product use in unapproved indication [Unknown]
  - Condition aggravated [Recovering/Resolving]
  - Joint swelling [Recovering/Resolving]
  - Arthralgia [Recovering/Resolving]
  - Groin pain [Recovering/Resolving]
  - Muscle spasms [Recovered/Resolved]
  - Vibratory sense increased [Recovering/Resolving]
  - Headache [Recovering/Resolving]
  - Oesophageal spasm [Recovering/Resolving]
  - Gait disturbance [Recovering/Resolving]
  - Thrombosis [Recovering/Resolving]
  - Temporomandibular joint syndrome [Unknown]
  - Arthritis [Unknown]
  - Constipation [Not Recovered/Not Resolved]
  - Gastrooesophageal reflux disease [Recovering/Resolving]
  - Abdominal pain upper [Not Recovered/Not Resolved]

NARRATIVE: CASE EVENT DATE: 20200301
